FAERS Safety Report 16004481 (Version 2)
Quarter: 2019Q1

REPORT INFORMATION
  Report Type: Spontaneous
  Country: SE (occurrence: SE)
  Receive Date: 20190226
  Receipt Date: 20190308
  Transmission Date: 20190418
  Serious: Yes (Hospitalization)
  Sender: FDA-Public Use
  Company Number: SE-ACCORD-109446

PATIENT
  Age: 74 Year
  Sex: Male

DRUGS (1)
  1. ALLOPURINOL. [Suspect]
     Active Substance: ALLOPURINOL
     Indication: GOUT
     Dates: start: 2018

REACTIONS (2)
  - Skin reaction [Unknown]
  - Pyrexia [Unknown]

NARRATIVE: CASE EVENT DATE: 201805
